FAERS Safety Report 5287378-4 (Version None)
Quarter: 2007Q1

REPORT INFORMATION
  Report Type: 
  Country: None (occurrence: None)
  Receive Date: 20070116
  Receipt Date: 20061106
  Transmission Date: 20070707
  Serious: No
  Sender: FDA-Public Use
  Company Number: 2006SP003942

PATIENT
  Age: 48 Year
  Sex: Female
  Weight: 79.3795 kg

DRUGS (10)
  1. LUNESTA [Suspect]
     Indication: INSOMNIA
     Dosage: 3 MG;HS;ORAL
     Route: 048
     Dates: start: 20061103
  2. METHADONE HCL [Concomitant]
  3. VICODIN [Concomitant]
  4. XANAX [Concomitant]
  5. LOPRESSOR [Concomitant]
  6. HYDROCHLOROTHIAZIDE [Concomitant]
  7. ZYRTEC [Concomitant]
  8. SOMA [Concomitant]
  9. TAGAMET [Concomitant]
  10. RANITIDINE [Concomitant]

REACTIONS (1)
  - DYSGEUSIA [None]
